FAERS Safety Report 6679643-0 (Version None)
Quarter: 2010Q2

REPORT INFORMATION
  Report Type: 
  Country: None (occurrence: None)
  Receive Date: 20100413
  Receipt Date: 20100408
  Transmission Date: 20101027
  Serious: Yes (Other)
  Sender: FDA-Public Use
  Company Number: A0850120A

PATIENT
  Sex: Female

DRUGS (4)
  1. TYKERB [Suspect]
     Dosage: 1000MG PER DAY
     Route: 048
     Dates: start: 20100121, end: 20100407
  2. UNKNOWN BLOOD PRESSURE MEDICATION [Concomitant]
     Route: 065
  3. UNKNOWN MEDICATION [Concomitant]
     Route: 065
  4. XELODA [Concomitant]

REACTIONS (10)
  - ASTHENIA [None]
  - BREAST CANCER [None]
  - CONTUSION [None]
  - DECREASED APPETITE [None]
  - DIZZINESS [None]
  - DRUG INEFFECTIVE [None]
  - ERYTHEMA [None]
  - HAEMORRHAGE [None]
  - MEMORY IMPAIRMENT [None]
  - WEIGHT DECREASED [None]
